FAERS Safety Report 21533040 (Version 1)
Quarter: 2022Q4

REPORT INFORMATION
  Report Type: Spontaneous
  Country: CN (occurrence: CN)
  Receive Date: 20221101
  Receipt Date: 20221101
  Transmission Date: 20230112
  Serious: Yes (Other)
  Sender: FDA-Public Use
  Company Number: None

PATIENT
  Age: 65 Year
  Sex: Male
  Weight: 83.8 kg

DRUGS (3)
  1. CLOPIDOGREL [Suspect]
     Active Substance: CLOPIDOGREL BISULFATE
     Indication: Antiplatelet therapy
     Dosage: 75MG,QD
     Route: 048
     Dates: start: 20221015, end: 20221016
  2. RIVAROXABAN [Suspect]
     Active Substance: RIVAROXABAN
     Indication: Anticoagulant therapy
     Dosage: 10MG,QD
     Route: 048
     Dates: start: 20221015, end: 20221016
  3. RIVAROXABAN [Suspect]
     Active Substance: RIVAROXABAN
     Dosage: 5 MG PO QD
     Route: 048
     Dates: start: 20221016

REACTIONS (2)
  - Haematuria [Recovered/Resolved]
  - Haemoglobin decreased [Recovered/Resolved]

NARRATIVE: CASE EVENT DATE: 20221016
